APPROVED DRUG PRODUCT: SIMLIYA
Active Ingredient: DESOGESTREL; ETHINYL ESTRADIOL
Strength: 0.15MG,N/A;0.02MG,0.01MG
Dosage Form/Route: TABLET;ORAL-28
Application: A206853 | Product #001 | TE Code: AB
Applicant: AUROBINDO PHARMA LTD
Approved: Mar 22, 2017 | RLD: No | RS: No | Type: RX